FAERS Safety Report 13835052 (Version 3)
Quarter: 2018Q2

REPORT INFORMATION
  Report Type: Spontaneous
  Country: US (occurrence: US)
  Receive Date: 20170804
  Receipt Date: 20180602
  Transmission Date: 20180711
  Serious: Yes (Death, Life-Threatening, Hospitalization, Other)
  Sender: FDA-Public Use
  Company Number: US-AUROBINDO-AUR-APL-2016-15516

PATIENT
  Age: 53 Year
  Sex: Male

DRUGS (5)
  1. AMLODIPINE 10 MG [Suspect]
     Active Substance: AMLODIPINE BESYLATE
     Indication: SUICIDE ATTEMPT
     Dosage: 10 MG, UNK
     Route: 048
  2. RISPERIDONE. [Concomitant]
     Active Substance: RISPERIDONE
     Indication: DEPRESSION
  3. TRAZODONE [Concomitant]
     Active Substance: TRAZODONE HYDROCHLORIDE
     Indication: DEPRESSION
  4. DIVALPROEX [Concomitant]
     Active Substance: DIVALPROEX SODIUM
     Indication: DEPRESSION
  5. AMLODIPINE 10 MG [Suspect]
     Active Substance: AMLODIPINE BESYLATE
     Dosage: 80 DOSAGE FORM
     Route: 048

REACTIONS (8)
  - Cardiac arrest [Unknown]
  - Brain herniation [Unknown]
  - Brain injury [Fatal]
  - Hypotension [Unknown]
  - Intentional overdose [Unknown]
  - Acute kidney injury [Unknown]
  - Brain death [Fatal]
  - Pulseless electrical activity [Fatal]
